FAERS Safety Report 12291486 (Version 1)
Quarter: 2016Q2

REPORT INFORMATION
  Report Type: Report from Study
  Country: US (occurrence: US)
  Receive Date: 20160421
  Receipt Date: 20160421
  Transmission Date: 20160815
  Serious: No
  Sender: FDA-Public Use
  Company Number: US-AMGEN-USASL2016025275

PATIENT
  Age: 99 Year
  Sex: Female

DRUGS (1)
  1. REPATHA [Suspect]
     Active Substance: EVOLOCUMAB
     Indication: PRODUCT USED FOR UNKNOWN INDICATION
     Dosage: UNK
     Route: 065

REACTIONS (7)
  - Feeling abnormal [Unknown]
  - Diaphragmatic spasm [Unknown]
  - Diarrhoea [Unknown]
  - Sneezing [Unknown]
  - Paraesthesia [Unknown]
  - Hypoaesthesia [Unknown]
  - Memory impairment [Unknown]
